FAERS Safety Report 7749363-X (Version None)
Quarter: 2011Q3

REPORT INFORMATION
  Report Type: 
  Country: None (occurrence: None)
  Receive Date: 20110909
  Receipt Date: 20110826
  Transmission Date: 20111222
  Serious: Yes (Hospitalization)
  Sender: FDA-Public Use
  Company Number: AUR-APL-2011-04849

PATIENT
  Age: 74 Year
  Sex: Male

DRUGS (12)
  1. SPIRIVA [Concomitant]
  2. FUROSEMIDE [Suspect]
     Indication: PRODUCT USED FOR UNKNOWN INDICATION
     Dosage: (20 MG,1 D),ORAL
     Route: 048
     Dates: start: 20110801
  3. ALLOPURINOL [Concomitant]
  4. RANITIDINE [Concomitant]
  5. SIMVASTATIN [Concomitant]
  6. ASPIRIN [Concomitant]
  7. DEXAMETHASONE [Concomitant]
  8. DALTEPARIN SODIUM [Suspect]
     Indication: LUNG NEOPLASM MALIGNANT
     Dates: start: 20110704
  9. DIGOXIN [Concomitant]
  10. FLUTICASONE PROPIONATE/SALMETEROL [Concomitant]
  11. PERINDOPRIL ERBUMINE [Suspect]
     Indication: PRODUCT USED FOR UNKNOWN INDICATION
     Dosage: (8 MG),ORAL
     Route: 048
     Dates: start: 20080101
  12. BISOPROLOL FUMARATE [Concomitant]

REACTIONS (6)
  - INCORRECT DRUG ADMINISTRATION DURATION [None]
  - BLOOD SODIUM DECREASED [None]
  - COUGH [None]
  - DYSPNOEA [None]
  - CONFUSIONAL STATE [None]
  - OVERDOSE [None]
